FAERS Safety Report 24740127 (Version 1)
Quarter: 2024Q4

REPORT INFORMATION
  Report Type: Spontaneous
  Country: US (occurrence: US)
  Receive Date: 20241216
  Receipt Date: 20241216
  Transmission Date: 20250115
  Serious: No
  Sender: BAUSCH AND LOMB
  Company Number: US-BAUSCHBL-2024BNL038613

PATIENT
  Sex: Female

DRUGS (1)
  1. MIEBO [Suspect]
     Active Substance: PERFLUOROHEXYLOCTANE
     Indication: Dry eye
     Route: 047
     Dates: start: 2024, end: 2024

REACTIONS (1)
  - Blepharitis [Recovered/Resolved]

NARRATIVE: CASE EVENT DATE: 20240101
